FAERS Safety Report 24849521 (Version 1)
Quarter: 2025Q1

REPORT INFORMATION
  Report Type: Spontaneous
  Country: FR (occurrence: FR)
  Receive Date: 20250116
  Receipt Date: 20250116
  Transmission Date: 20250409
  Serious: Yes (Congenital Anomaly)
  Sender: ACCORD
  Company Number: None

PATIENT
  Age: 1 Day
  Sex: Male
  Weight: 3.6 kg

DRUGS (3)
  1. METHOTREXATE [Suspect]
     Active Substance: METHOTREXATE
     Indication: Sarcoidosis
     Dates: start: 20230415, end: 20230523
  2. HUMIRA [Suspect]
     Active Substance: ADALIMUMAB
     Indication: Sarcoidosis
     Dates: start: 20230415, end: 20240108
  3. PREDNISONE [Suspect]
     Active Substance: PREDNISONE
     Indication: Sarcoidosis
     Dates: start: 20230415, end: 20240122

REACTIONS (2)
  - Maternal exposure during pregnancy [Recovered/Resolved]
  - Bicuspid aortic valve [Not Recovered/Not Resolved]

NARRATIVE: CASE EVENT DATE: 20230430
